FAERS Safety Report 8996897 (Version 1)
Quarter: 2012Q4

REPORT INFORMATION
  Report Type: Spontaneous
  Country: AT (occurrence: None)
  Receive Date: 20121221
  Receipt Date: 20121221
  Transmission Date: 20130627
  Serious: Yes (Other)
  Sender: FDA-Public Use
  Company Number: PRED20120074

PATIENT
  Sex: Male

DRUGS (2)
  1. ASPARAGINASE (ASPARAGINASE) (UNKNOWN) [Suspect]
     Dosage: 5000 IE/Sq. meter, per day
  2. PREDNISONE TABLETS USP 5MG (NO PREF. NAME) [Suspect]
     Dosage: 5000 IE/SQ METER, PER DAY UNKNOWN

REACTIONS (4)
  - Hypertriglyceridaemia [None]
  - Angina pectoris [None]
  - Abdominal pain [None]
  - Pancreatic enzymes increased [None]
